FAERS Safety Report 5210569-5 (Version None)
Quarter: 2007Q1

REPORT INFORMATION
  Report Type: 
  Country: None (occurrence: None)
  Receive Date: 20070117
  Receipt Date: 20070115
  Transmission Date: 20070707
  Serious: Yes (Life-Threatening)
  Sender: FDA-Public Use
  Company Number: 2007CG00110

PATIENT
  Age: 36 Year
  Sex: Female

DRUGS (4)
  1. DIPRIVAN [Suspect]
     Indication: GENERAL ANAESTHESIA
     Route: 042
     Dates: start: 20061028, end: 20061028
  2. ULTIVA [Suspect]
     Indication: GENERAL ANAESTHESIA
     Route: 042
     Dates: start: 20061028, end: 20061028
  3. RAPIFEN [Suspect]
     Indication: GENERAL ANAESTHESIA
     Route: 042
     Dates: start: 20061028, end: 20061028
  4. HYPNOVEL [Suspect]
     Indication: GENERAL ANAESTHESIA
     Route: 042
     Dates: start: 20061028, end: 20061028

REACTIONS (2)
  - ANAPHYLACTIC SHOCK [None]
  - SHOCK [None]
